FAERS Safety Report 12550504 (Version 2)
Quarter: 2016Q3

REPORT INFORMATION
  Report Type: Spontaneous
  Country: US (occurrence: US)
  Receive Date: 20160712
  Receipt Date: 20160801
  Transmission Date: 20161109
  Serious: Yes (Hospitalization)
  Sender: FDA-Public Use
  Company Number: US-ELI_LILLY_AND_COMPANY-US201607001419

PATIENT
  Age: 88 Year
  Sex: Female

DRUGS (12)
  1. VITAMIN D3 [Concomitant]
     Active Substance: CHOLECALCIFEROL
     Dosage: 2000 U, UNK
  2. VITAMIN B12 [Concomitant]
     Active Substance: CYANOCOBALAMIN
  3. SENNOKOTT [Concomitant]
  4. VITAMIIN C [Concomitant]
     Active Substance: ASCORBIC ACID
  5. AMLODIPINE [Concomitant]
     Active Substance: AMLODIPINE BESYLATE
  6. ASPIRIN                            /00002701/ [Concomitant]
     Active Substance: ASPIRIN
     Dosage: 81 MG, UNK
  7. CALCIUM [Concomitant]
     Active Substance: CALCIUM
  8. LOSARTAN. [Concomitant]
     Active Substance: LOSARTAN
  9. FORTEO [Suspect]
     Active Substance: TERIPARATIDE
     Indication: OSTEOPOROSIS
     Dosage: 20 UG, QD
     Route: 065
     Dates: start: 20160608, end: 20160628
  10. OMEGA 3                            /01333901/ [Concomitant]
     Active Substance: FISH OIL\TOCOPHEROL
  11. DOCUSATE [Concomitant]
     Active Substance: DOCUSATE
  12. NIACIN. [Concomitant]
     Active Substance: NIACIN

REACTIONS (6)
  - Hypotension [Recovered/Resolved]
  - Blood pressure increased [Unknown]
  - Cerebral small vessel ischaemic disease [Unknown]
  - Cardiomegaly [Unknown]
  - Left ventricular dysfunction [Unknown]
  - Mitral valve incompetence [Unknown]

NARRATIVE: CASE EVENT DATE: 20160628
